FAERS Safety Report 6255739-2 (Version None)
Quarter: 2009Q3

REPORT INFORMATION
  Report Type: 
  Country: None (occurrence: None)
  Receive Date: 20090701
  Receipt Date: 20090626
  Transmission Date: 20100115
  Serious: Yes (Death, Other)
  Sender: FDA-Public Use
  Company Number: 2008SP022499

PATIENT
  Age: 77 Year
  Sex: Male

DRUGS (2)
  1. INTRON A [Suspect]
     Indication: RENAL CANCER METASTATIC
  2. SUNITINIB (PROTEASE INHIBITORS) [Suspect]
     Indication: DRUG USE FOR UNKNOWN INDICATION
     Dates: start: 20070701

REACTIONS (26)
  - AGITATION [None]
  - ASTHENIA [None]
  - CIRCULATORY COLLAPSE [None]
  - COLD SWEAT [None]
  - CONFUSIONAL STATE [None]
  - DECREASED APPETITE [None]
  - DIARRHOEA [None]
  - DISCOMFORT [None]
  - FACE OEDEMA [None]
  - FATIGUE [None]
  - GENERAL PHYSICAL HEALTH DETERIORATION [None]
  - HYPOVENTILATION [None]
  - INCONTINENCE [None]
  - LOWER RESPIRATORY TRACT INFECTION [None]
  - MALIGNANT NEOPLASM PROGRESSION [None]
  - MOUTH ULCERATION [None]
  - MUSCLE ATROPHY [None]
  - ORAL CANDIDIASIS [None]
  - OROPHARYNGEAL PAIN [None]
  - PALLOR [None]
  - PETECHIAE [None]
  - PNEUMONIA ASPIRATION [None]
  - RESPIRATION ABNORMAL [None]
  - RESPIRATORY RATE DECREASED [None]
  - SOMNOLENCE [None]
  - URINE ODOUR ABNORMAL [None]
